FAERS Safety Report 24129077 (Version 2)
Quarter: 2024Q3

REPORT INFORMATION
  Report Type: Report from Study
  Country: US (occurrence: US)
  Receive Date: 20240723
  Receipt Date: 20240806
  Transmission Date: 20241017
  Serious: Yes (Hospitalization)
  Sender: SANDOZ
  Company Number: US-002147023-NVSC2022US085004

PATIENT
  Sex: Female
  Weight: 49.887 kg

DRUGS (5)
  1. TREPROSTINIL [Suspect]
     Active Substance: TREPROSTINIL
     Dosage: 23 NG/KG/MIN, CONT
     Route: 042
  2. TREPROSTINIL [Suspect]
     Active Substance: TREPROSTINIL
     Indication: Pulmonary arterial hypertension
     Dosage: 22 NG/KG/MIN, CONT
     Route: 042
     Dates: start: 20220323
  3. TREPROSTINIL [Suspect]
     Active Substance: TREPROSTINIL
     Dosage: 17 NG/KG/ MIN, CONT
     Route: 065
     Dates: start: 20220323
  4. TREPROSTINIL [Suspect]
     Active Substance: TREPROSTINIL
     Dosage: 23 NG/KG/MIN
     Route: 042
     Dates: start: 20220323
  5. TADALAFIL [Concomitant]
     Active Substance: TADALAFIL
     Indication: Pulmonary arterial hypertension
     Dosage: UNK
     Route: 065

REACTIONS (13)
  - Wound complication [Unknown]
  - Catheter site infection [Unknown]
  - Flushing [Unknown]
  - Frustration tolerance decreased [Unknown]
  - Anxiety [Unknown]
  - Infusion site extravasation [Unknown]
  - Influenza like illness [Unknown]
  - Fatigue [Unknown]
  - Malaise [Unknown]
  - Dyspnoea [Unknown]
  - Dizziness [Unknown]
  - Accidental exposure to product [Unknown]
  - Product dose omission issue [Unknown]
